FAERS Safety Report 6749592-8 (Version None)
Quarter: 2010Q2

REPORT INFORMATION
  Report Type: 
  Country: None (occurrence: None)
  Receive Date: 20100601
  Receipt Date: 20100525
  Transmission Date: 20101027
  Serious: Yes (Hospitalization)
  Sender: FDA-Public Use
  Company Number: A0817899A

PATIENT
  Sex: Male

DRUGS (1)
  1. AVANDIA [Suspect]
     Indication: TYPE 2 DIABETES MELLITUS

REACTIONS (5)
  - ADVERSE EVENT [None]
  - CARDIOMEGALY [None]
  - HEART INJURY [None]
  - MYOCARDIAL INFARCTION [None]
  - VENTRICLE RUPTURE [None]
